FAERS Safety Report 5728537-3 (Version None)
Quarter: 2008Q2

REPORT INFORMATION
  Report Type: 
  Country: None (occurrence: None)
  Receive Date: 20080506
  Receipt Date: 20080425
  Transmission Date: 20081010
  Serious: Yes (Other)
  Sender: FDA-Public Use
  Company Number: GB-AMGEN-US276953

PATIENT
  Sex: Male

DRUGS (1)
  1. ENBREL [Suspect]
     Indication: DRUG USE FOR UNKNOWN INDICATION
     Route: 065

REACTIONS (8)
  - DIZZINESS [None]
  - FEELING HOT [None]
  - HYPERTENSION [None]
  - HYPOAESTHESIA [None]
  - INJECTION SITE PAIN [None]
  - MUSCLE SPASMS [None]
  - PANIC ATTACK [None]
  - PARAESTHESIA [None]
